FAERS Safety Report 9181174 (Version 2)
Quarter: 2013Q1

REPORT INFORMATION
  Report Type: Spontaneous
  Country: US (occurrence: US)
  Receive Date: 20130322
  Receipt Date: 20130322
  Transmission Date: 20140127
  Serious: No
  Sender: FDA-Public Use
  Company Number: US-MYLANLABS-2012S1013126

PATIENT
  Age: 64 Year
  Sex: Male
  Weight: 97.52 kg

DRUGS (1)
  1. EMSAM [Suspect]
     Indication: DEPRESSION
     Route: 062

REACTIONS (3)
  - Drug effect decreased [Recovered/Resolved]
  - Depression [Recovered/Resolved]
  - Application site erythema [Not Recovered/Not Resolved]
